FAERS Safety Report 23360049 (Version 1)
Quarter: 2024Q1

REPORT INFORMATION
  Report Type: Spontaneous
  Country: US (occurrence: US)
  Receive Date: 20240103
  Receipt Date: 20240103
  Transmission Date: 20240409
  Serious: No
  Sender: FDA-Public Use
  Company Number: US-BRISTOL-MYERS SQUIBB COMPANY-2024-000173

PATIENT
  Age: 62 Year
  Sex: Male

DRUGS (1)
  1. ZEPOSIA [Suspect]
     Active Substance: OZANIMOD HYDROCHLORIDE
     Indication: Illness
     Route: 048
     Dates: start: 202310

REACTIONS (3)
  - Night sweats [Unknown]
  - Pain [Unknown]
  - Fatigue [Unknown]
